FAERS Safety Report 19758345 (Version 2)
Quarter: 2021Q3

REPORT INFORMATION
  Report Type: Spontaneous
  Country: BE (occurrence: BE)
  Receive Date: 20210828
  Receipt Date: 20210902
  Transmission Date: 20211014
  Serious: Yes (Other)
  Sender: FDA-Public Use
  Company Number: BE-AMGEN-BELSP2021104215

PATIENT
  Age: 55 Year
  Sex: Female

DRUGS (3)
  1. FEMARA [Concomitant]
     Active Substance: LETROZOLE
     Dosage: UNK
     Dates: start: 2015
  2. MEDROL [Concomitant]
     Active Substance: METHYLPREDNISOLONE
  3. PROLIA [Suspect]
     Active Substance: DENOSUMAB
     Indication: PRODUCT USED FOR UNKNOWN INDICATION
     Dosage: UNK, Q6MO
     Route: 065
     Dates: start: 202012

REACTIONS (3)
  - Tongue disorder [Recovered/Resolved]
  - Axillary pain [Recovering/Resolving]
  - Eczema [Recovered/Resolved]

NARRATIVE: CASE EVENT DATE: 202106
